FAERS Safety Report 8780452 (Version 1)
Quarter: 2012Q4

REPORT INFORMATION
  Report Type: Spontaneous
  Country: US (occurrence: None)
  Receive Date: 20120906
  Receipt Date: 20120906
  Transmission Date: 20130627
  Serious: No
  Sender: FDA-Public Use
  Company Number: None

PATIENT
  Age: 56 Year
  Sex: Male
  Weight: 52.62 kg

DRUGS (1)
  1. AMPYRA [Suspect]
     Indication: MULTIPLE SCLEROSIS
     Dosage: 7-23 thru 7-28
8-2 thru 8-7
     Route: 048
     Dates: start: 20120723, end: 20120728

REACTIONS (9)
  - Malaise [None]
  - Diarrhoea [None]
  - Influenza like illness [None]
  - Oropharyngeal pain [None]
  - Rash [None]
  - Inflammation [None]
  - Paraesthesia [None]
  - Skin exfoliation [None]
  - Hyperkeratosis [None]
